FAERS Safety Report 25173209 (Version 1)
Quarter: 2025Q2

REPORT INFORMATION
  Report Type: Spontaneous
  Country: US (occurrence: US)
  Receive Date: 20250408
  Receipt Date: 20250408
  Transmission Date: 20250716
  Serious: No
  Sender: PFIZER
  Company Number: US-PFIZER INC-PV202500040652

PATIENT
  Age: 74 Year
  Sex: Female

DRUGS (2)
  1. MORPHINE SULFATE [Suspect]
     Active Substance: MORPHINE SULFATE
  2. CODEINE PHOSPHATE [Suspect]
     Active Substance: CODEINE PHOSPHATE

REACTIONS (1)
  - Pruritus [Unknown]
